FAERS Safety Report 5599746-1 (Version None)
Quarter: 2008Q1

REPORT INFORMATION
  Report Type: 
  Country: None (occurrence: None)
  Receive Date: 20080123
  Receipt Date: 20080116
  Transmission Date: 20080703
  Serious: Yes (Hospitalization)
  Sender: FDA-Public Use
  Company Number: FR-BRISTOL-MYERS SQUIBB COMPANY-14044499

PATIENT
  Age: 29 Year
  Sex: Female

DRUGS (5)
  1. SUSTIVA [Suspect]
     Dates: start: 20071115
  2. KIVEXA [Suspect]
     Dosage: 1 DOSAGE FORM = 600 MG/300 MG.
     Dates: start: 20071115, end: 20071214
  3. MALOCIDE [Suspect]
     Indication: CEREBRAL TOXOPLASMOSIS
  4. ADIAZINE [Suspect]
     Indication: CEREBRAL TOXOPLASMOSIS
     Dosage: ADIAZINE 500 MG , IN SEP 2007, DIAGNOSIS OF A CEREBRAL TOXOPLASMOSIS.
     Dates: start: 20071005, end: 20071115
  5. LEDERFOLINE [Suspect]

REACTIONS (1)
  - NEUTROPENIA [None]
